FAERS Safety Report 7961856-9 (Version None)
Quarter: 2011Q4

REPORT INFORMATION
  Report Type: 
  Country: None (occurrence: None)
  Receive Date: 20111207
  Receipt Date: 20111123
  Transmission Date: 20120403
  Serious: Yes (Other)
  Sender: FDA-Public Use
  Company Number: US-ROCHE-1004036

PATIENT
  Sex: Female

DRUGS (1)
  1. ZELBORAF [Suspect]
     Indication: PRODUCT USED FOR UNKNOWN INDICATION

REACTIONS (10)
  - MADAROSIS [None]
  - BURNING SENSATION [None]
  - ACNE [None]
  - URTICARIA [None]
  - RASH [None]
  - VISION BLURRED [None]
  - NAUSEA [None]
  - MYALGIA [None]
  - ARTHRALGIA [None]
  - HEADACHE [None]
